FAERS Safety Report 17807832 (Version 1)
Quarter: 2020Q2

REPORT INFORMATION
  Report Type: Spontaneous
  Country: NO (occurrence: NO)
  Receive Date: 20200520
  Receipt Date: 20200520
  Transmission Date: 20200714
  Serious: Yes (Death)
  Sender: FDA-Public Use
  Company Number: NO-JNJFOC-20200523668

PATIENT
  Age: 71 Year
  Sex: Male

DRUGS (2)
  1. METEX                              /00113802/ [Concomitant]
     Active Substance: METHOTREXATE SODIUM
     Indication: PRODUCT USED FOR UNKNOWN INDICATION
     Dosage: DOSE LAST CHANGED 23/MAR/2018
     Route: 058
     Dates: start: 20080122
  2. SIMPONI [Suspect]
     Active Substance: GOLIMUMAB
     Indication: PSORIATIC ARTHROPATHY
     Dosage: STRENGTH: 50 MG / 0.5 ML DEC/2018: FREQUENCY TIME REDUCED TO EVERY 23. DAYS, THEN LATER TO EVERY ...
     Route: 058
     Dates: start: 20100414, end: 20200402

REACTIONS (1)
  - Oesophageal carcinoma [Fatal]

NARRATIVE: CASE EVENT DATE: 20200331
